FAERS Safety Report 18787478 (Version 8)
Quarter: 2021Q3

REPORT INFORMATION
  Report Type: Report from Study
  Country: CN (occurrence: CN)
  Receive Date: 20210126
  Receipt Date: 20210726
  Transmission Date: 20211014
  Serious: Yes (Hospitalization)
  Sender: FDA-Public Use
  Company Number: CN-ROCHE-2752958

PATIENT
  Age: 52 Year
  Sex: Female
  Weight: 60 kg

DRUGS (43)
  1. TIOPRONIN [Concomitant]
     Active Substance: TIOPRONIN
     Route: 042
     Dates: start: 20201118, end: 20201118
  2. INSULIN [Concomitant]
     Active Substance: INSULIN NOS
     Dosage: DOSE 8 U
     Route: 042
     Dates: start: 20210311, end: 20210312
  3. TRASTUZUMAB. [Suspect]
     Active Substance: TRASTUZUMAB
     Indication: HER2 POSITIVE BREAST CANCER
     Dosage: ON 29/DEC/2020, SHE RECEIVED MOST RECENT DOSE OF TRANSTUZUMAB 480 MG PRIOR TO ADVERSE EVENT.
     Route: 041
     Dates: start: 20201229
  4. PALONOSETRON HYDROCHLORIDE. [Concomitant]
     Active Substance: PALONOSETRON HYDROCHLORIDE
     Indication: VOMITING
     Route: 042
     Dates: start: 20201118, end: 20201118
  5. TIOPRONIN [Concomitant]
     Active Substance: TIOPRONIN
     Route: 042
     Dates: start: 20201229, end: 20201229
  6. DEXAMETHASONE SODIUM PHOSPHATE. [Concomitant]
     Active Substance: DEXAMETHASONE SODIUM PHOSPHATE
     Route: 042
     Dates: start: 20201209, end: 20201210
  7. POTASSIUM CHLORIDE. [Concomitant]
     Active Substance: POTASSIUM CHLORIDE
     Route: 042
     Dates: start: 20201209, end: 20201210
  8. POTASSIUM CHLORIDE. [Concomitant]
     Active Substance: POTASSIUM CHLORIDE
     Route: 042
     Dates: start: 20210311, end: 20210312
  9. MAGNESIUM ISOGLYCYRRHIZINATE [Concomitant]
     Active Substance: MAGNESIUM ISOGLYCYRRHIZINATE
     Route: 042
     Dates: start: 20210118, end: 20210125
  10. PERTUZUMAB. [Suspect]
     Active Substance: PERTUZUMAB
     Indication: HER2 POSITIVE BREAST CANCER
     Dosage: ON 29/DEC/2020, SHE RECEIVED MOST RECENT DOSE OF PERTUZUMAB 840 MG PRIOR TO ADVERSE EVENT.
     Route: 042
     Dates: start: 20201229
  11. DOCETAXEL. [Suspect]
     Active Substance: DOCETAXEL
     Indication: HER2 POSITIVE BREAST CANCER
     Dosage: ON 29/DEC/2020, SHE RECEIVED MOST RECENT DOSE OF DOCETAXEL 972 MG PRIOR TO ADVERSE EVENT.
     Route: 042
     Dates: start: 20201229
  12. DEXAMETHASONE SODIUM PHOSPHATE. [Concomitant]
     Active Substance: DEXAMETHASONE SODIUM PHOSPHATE
     Indication: INFUSION RELATED REACTION
     Route: 042
     Dates: start: 20201118, end: 20201118
  13. DEXAMETHASONE SODIUM PHOSPHATE. [Concomitant]
     Active Substance: DEXAMETHASONE SODIUM PHOSPHATE
     Route: 042
     Dates: start: 20210125, end: 20210125
  14. VITAMIN C [Concomitant]
     Active Substance: ASCORBIC ACID
     Route: 042
     Dates: start: 20201118, end: 20201118
  15. VITAMIN C [Concomitant]
     Active Substance: ASCORBIC ACID
     Route: 042
     Dates: start: 20210311, end: 20210312
  16. INSULIN [Concomitant]
     Active Substance: INSULIN NOS
     Dosage: DOSE 8 U
     Route: 042
     Dates: start: 20201118, end: 20201118
  17. POTASSIUM CHLORIDE. [Concomitant]
     Active Substance: POTASSIUM CHLORIDE
     Route: 042
     Dates: start: 20201118, end: 20201118
  18. POTASSIUM CHLORIDE. [Concomitant]
     Active Substance: POTASSIUM CHLORIDE
     Route: 042
     Dates: start: 20201229, end: 20201229
  19. BING PENG SAN [Concomitant]
     Indication: APHTHOUS ULCER
     Route: 061
     Dates: start: 20210101, end: 20210114
  20. DOXORUBICIN [Suspect]
     Active Substance: DOXORUBICIN
     Indication: HER2 POSITIVE BREAST CANCER
     Dosage: ON 09/DEC/2020, SHE RECEIVED MOST RECENT DOSE OF DOXIRUBACIN 97.2 MG PRIOR TO ADVERSE EVENT.
     Route: 042
     Dates: start: 20201006
  21. PALONOSETRON HYDROCHLORIDE. [Concomitant]
     Active Substance: PALONOSETRON HYDROCHLORIDE
     Route: 042
     Dates: start: 20210125, end: 20210125
  22. TIOPRONIN [Concomitant]
     Active Substance: TIOPRONIN
     Route: 042
     Dates: start: 20201209, end: 20201210
  23. VITAMIN C [Concomitant]
     Active Substance: ASCORBIC ACID
     Route: 042
     Dates: start: 20201209, end: 20201210
  24. INSULIN [Concomitant]
     Active Substance: INSULIN NOS
     Dosage: DOSE 8 U
     Route: 042
     Dates: start: 20201209, end: 20201210
  25. INSULIN [Concomitant]
     Active Substance: INSULIN NOS
     Dosage: DOSE 8 U
     Route: 042
     Dates: start: 20201229, end: 20201229
  26. DIAMMONIUM GLYCYRRHIZINATE [Concomitant]
     Active Substance: HERBALS\DIAMMONIUM GLYCYRRHIZINATE
     Route: 048
     Dates: start: 20210118, end: 20210125
  27. CYDIODINE [Concomitant]
     Indication: APHTHOUS ULCER
     Route: 061
     Dates: start: 20210101, end: 20210114
  28. PALONOSETRON HYDROCHLORIDE. [Concomitant]
     Active Substance: PALONOSETRON HYDROCHLORIDE
     Route: 042
     Dates: start: 20210218, end: 20210218
  29. DEXAMETHASONE SODIUM PHOSPHATE. [Concomitant]
     Active Substance: DEXAMETHASONE SODIUM PHOSPHATE
     Route: 042
     Dates: start: 20201229, end: 20201229
  30. DEXAMETHASONE SODIUM PHOSPHATE. [Concomitant]
     Active Substance: DEXAMETHASONE SODIUM PHOSPHATE
     Route: 042
     Dates: start: 20210311, end: 20210312
  31. VITAMIN B6 [Concomitant]
     Active Substance: PYRIDOXINE HYDROCHLORIDE
     Route: 042
     Dates: start: 20201118, end: 20201118
  32. VITAMIN B6 [Concomitant]
     Active Substance: PYRIDOXINE HYDROCHLORIDE
     Route: 042
     Dates: start: 20201209, end: 20201210
  33. VITAMIN B6 [Concomitant]
     Active Substance: PYRIDOXINE HYDROCHLORIDE
     Route: 042
     Dates: start: 20210125, end: 20210125
  34. VITAMIN B6 [Concomitant]
     Active Substance: PYRIDOXINE HYDROCHLORIDE
     Route: 042
     Dates: start: 20210311, end: 20210312
  35. POTASSIUM CHLORIDE. [Concomitant]
     Active Substance: POTASSIUM CHLORIDE
     Route: 042
     Dates: start: 20210125, end: 20210125
  36. REDUCED GLUTATHIONE SODIUM [Concomitant]
     Active Substance: GLUTATHIONE
     Route: 042
     Dates: start: 20210118, end: 20210125
  37. DEXAMETHASONE SODIUM PHOSPHATE. [Concomitant]
     Active Substance: DEXAMETHASONE SODIUM PHOSPHATE
     Route: 042
     Dates: start: 20210218, end: 20210218
  38. VITAMIN C [Concomitant]
     Active Substance: ASCORBIC ACID
     Route: 042
     Dates: start: 20201229, end: 20201229
  39. VITAMIN C [Concomitant]
     Active Substance: ASCORBIC ACID
     Route: 042
     Dates: start: 20210125, end: 20210125
  40. CYCLOPHOSPHAMIDE. [Suspect]
     Active Substance: CYCLOPHOSPHAMIDE
     Indication: HER2 POSITIVE BREAST CANCER
     Dosage: ON 09/DEC/2020, SHE RECEIVED MOST RECENT DOSE OF CYCLOPHOSPHAMIDE 972 MG PRIOR TO ADVERSE EVENT.
     Route: 042
     Dates: start: 20201006
  41. TIOPRONIN [Concomitant]
     Active Substance: TIOPRONIN
     Route: 042
     Dates: start: 20210311, end: 20210312
  42. VITAMIN B6 [Concomitant]
     Active Substance: PYRIDOXINE HYDROCHLORIDE
     Route: 042
     Dates: start: 20201229, end: 20201229
  43. INSULIN [Concomitant]
     Active Substance: INSULIN NOS
     Dosage: DOSE 8 U
     Route: 042
     Dates: start: 20210125, end: 20210125

REACTIONS (2)
  - Alanine aminotransferase increased [Recovered/Resolved]
  - Aspartate aminotransferase increased [Recovered/Resolved]

NARRATIVE: CASE EVENT DATE: 20210118
